FAERS Safety Report 24677529 (Version 6)
Quarter: 2024Q4

REPORT INFORMATION
  Report Type: Spontaneous
  Country: US (occurrence: US)
  Receive Date: 20241129
  Receipt Date: 20241224
  Transmission Date: 20250115
  Serious: Yes (Hospitalization, Disabling, Congenital Anomaly, Other)
  Sender: ABBVIE
  Company Number: US-ABBVIE-6022055

PATIENT
  Age: 80 Year
  Sex: Male
  Weight: 79.378 kg

DRUGS (2)
  1. LUPRON DEPOT [Suspect]
     Active Substance: LEUPROLIDE ACETATE
     Indication: Prostate cancer
     Route: 030
     Dates: start: 202111, end: 202201
  2. LUPRON DEPOT [Suspect]
     Active Substance: LEUPROLIDE ACETATE
     Dosage: 22.5 MG, LAST ADMIN DATE: 2022
     Route: 030
     Dates: start: 202204

REACTIONS (55)
  - Gait inability [Not Recovered/Not Resolved]
  - Injection site pain [Not Recovered/Not Resolved]
  - Insomnia [Not Recovered/Not Resolved]
  - Myalgia [Not Recovered/Not Resolved]
  - Chest pain [Recovering/Resolving]
  - Muscle atrophy [Not Recovered/Not Resolved]
  - Back pain [Not Recovered/Not Resolved]
  - Hyperhidrosis [Recovering/Resolving]
  - Loss of personal independence in daily activities [Not Recovered/Not Resolved]
  - Sexual dysfunction [Not Recovered/Not Resolved]
  - Diarrhoea [Not Recovered/Not Resolved]
  - Arthralgia [Not Recovered/Not Resolved]
  - Toothache [Not Recovered/Not Resolved]
  - Wheelchair user [Not Recovered/Not Resolved]
  - Hospitalisation [Unknown]
  - Headache [Recovering/Resolving]
  - Urinary incontinence [Not Recovered/Not Resolved]
  - Mood altered [Unknown]
  - Musculoskeletal disorder [Not Recovered/Not Resolved]
  - Joint range of motion decreased [Recovered/Resolved]
  - Anal incontinence [Not Recovered/Not Resolved]
  - Dysstasia [Not Recovered/Not Resolved]
  - Genital atrophy [Unknown]
  - Mass [Not Recovered/Not Resolved]
  - Urinary tract disorder [Not Recovered/Not Resolved]
  - Oropharyngeal pain [Not Recovered/Not Resolved]
  - Ear pain [Unknown]
  - Impaired driving ability [Not Recovered/Not Resolved]
  - Breast pain [Recovering/Resolving]
  - Pruritus [Recovering/Resolving]
  - Visual impairment [Recovering/Resolving]
  - Dyspnoea [Unknown]
  - Penile size reduced [Recovering/Resolving]
  - Fall [Unknown]
  - Fatigue [Not Recovered/Not Resolved]
  - Penile infection [Recovered/Resolved]
  - Testicular hypotrophy [Recovering/Resolving]
  - Eye disorder [Recovering/Resolving]
  - Breast swelling [Recovering/Resolving]
  - Pollakiuria [Not Recovered/Not Resolved]
  - Disturbance in attention [Not Recovered/Not Resolved]
  - Dysarthria [Recovered/Resolved]
  - Confusional state [Not Recovered/Not Resolved]
  - Urinary tract infection [Recovered/Resolved]
  - Dizziness [Recovering/Resolving]
  - Gingival pain [Not Recovered/Not Resolved]
  - Liver injury [Recovering/Resolving]
  - Mobility decreased [Not Recovered/Not Resolved]
  - Haematuria [Recovered/Resolved]
  - Disability [Not Recovered/Not Resolved]
  - Neoplasm malignant [Not Recovered/Not Resolved]
  - Gait disturbance [Not Recovered/Not Resolved]
  - Oral disorder [Recovered/Resolved]
  - Arthritis [Not Recovered/Not Resolved]
  - Injection site erythema [Recovered/Resolved]

NARRATIVE: CASE EVENT DATE: 20211101
